APPROVED DRUG PRODUCT: IMMPHENTIV
Active Ingredient: PHENYLEPHRINE HYDROCHLORIDE
Strength: 0.5MG/5ML (0.1MG/ML)
Dosage Form/Route: SOLUTION;INTRAVENOUS
Application: N203826 | Product #004
Applicant: HIKMA PHARMACEUTICALS USA INC
Approved: Mar 9, 2023 | RLD: Yes | RS: Yes | Type: RX

PATENTS:
Patent 11213480 | Expires: Sep 26, 2036
Patent 11471400 | Expires: Aug 5, 2036
Patent 12257342 | Expires: Sep 26, 2036